FAERS Safety Report 10495779 (Version 1)
Quarter: 2014Q4

REPORT INFORMATION
  Report Type: Spontaneous
  Country: GB (occurrence: GB)
  Receive Date: 20141003
  Receipt Date: 20141003
  Transmission Date: 20150528
  Serious: Yes (Disabling)
  Sender: FDA-Public Use
  Company Number: GB-ACTAVIS-2014-21191

PATIENT
  Sex: Male
  Weight: 75 kg

DRUGS (1)
  1. FINASTERIDE (UNKNOWN) [Suspect]
     Active Substance: FINASTERIDE
     Indication: PROSTATISM
     Dosage: 5 MG, UNKNOWN
     Route: 048
     Dates: start: 201312, end: 201407

REACTIONS (2)
  - Lethargy [Recovered/Resolved]
  - Anhedonia [Recovered/Resolved]

NARRATIVE: CASE EVENT DATE: 201401
